FAERS Safety Report 10158283 (Version 1)
Quarter: 2014Q2

REPORT INFORMATION
  Report Type: Spontaneous
  Country: US (occurrence: US)
  Receive Date: 20140507
  Receipt Date: 20140507
  Transmission Date: 20141212
  Serious: Yes (Other)
  Sender: FDA-Public Use
  Company Number: US-ACTAVIS-2014-09112

PATIENT
  Age: 57 Year
  Sex: Male

DRUGS (3)
  1. ANDRODERM (WATSON LABORATORIES) [Suspect]
     Indication: BLOOD TESTOSTERONE DECREASED
     Dosage: UNK UNK, UNKNOWN
     Route: 065
     Dates: start: 201002, end: 201201
  2. ANDROGEL [Suspect]
     Indication: BLOOD TESTOSTERONE DECREASED
     Dosage: 1 %, UNKNOWN
     Route: 065
     Dates: start: 201201, end: 201301
  3. ANDROGEL [Suspect]
     Dosage: 1.62 %, UNKNOWN
     Route: 065
     Dates: start: 201301, end: 201302

REACTIONS (1)
  - Myocardial infarction [Unknown]
